FAERS Safety Report 4767852-7 (Version None)
Quarter: 2005Q3

REPORT INFORMATION
  Report Type: 
  Country: None (occurrence: None)
  Receive Date: 20050913
  Receipt Date: 20050829
  Transmission Date: 20060218
  Serious: Yes (Other)
  Sender: FDA-Public Use
  Company Number: US015892

PATIENT
  Age: 40 Year
  Sex: Female
  Weight: 60.782 kg

DRUGS (7)
  1. PROVIGIL [Suspect]
     Indication: NARCOLEPSY
     Dosage: 200 MG QD ORAL
     Route: 048
     Dates: start: 20040101, end: 20040701
  2. PROVIGIL [Suspect]
     Indication: NARCOLEPSY
     Dosage: 200 MG QD ORAL
     Route: 048
     Dates: start: 20040801, end: 20040801
  3. PROVIGIL [Suspect]
     Indication: NARCOLEPSY
     Dosage: 100 MG QD ORAL
     Route: 048
     Dates: start: 20050801, end: 20050801
  4. METHYLDOPA [Concomitant]
  5. XANAX [Concomitant]
  6. CLOMIPRAMINE HCL [Concomitant]
  7. DEXTROAMPHETAMINE [Concomitant]

REACTIONS (9)
  - ABNORMAL SENSATION IN EYE [None]
  - BLOOD PRESSURE INCREASED [None]
  - CEREBROVASCULAR ACCIDENT [None]
  - DEPRESSION [None]
  - DRUG WITHDRAWAL SYNDROME [None]
  - EYE PAIN [None]
  - GLOSSODYNIA [None]
  - HEADACHE [None]
  - HYPOAESTHESIA [None]
